FAERS Safety Report 21378757 (Version 1)
Quarter: 2022Q3

REPORT INFORMATION
  Report Type: Report from Study
  Country: NL (occurrence: NL)
  Receive Date: 20220927
  Receipt Date: 20220927
  Transmission Date: 20221027
  Serious: Yes (Other)
  Sender: FDA-Public Use
  Company Number: NL-NOVARTISPH-NVSC2022NL217123

PATIENT
  Age: 53 Year
  Sex: Female

DRUGS (1)
  1. MAYZENT [Suspect]
     Active Substance: SIPONIMOD
     Indication: Secondary progressive multiple sclerosis
     Dosage: 1 DOSAGE FORM, QD (2 STRIP)
     Route: 048

REACTIONS (1)
  - Peripheral paralysis [Not Recovered/Not Resolved]

NARRATIVE: CASE EVENT DATE: 20220919
